FAERS Safety Report 7466795-8 (Version None)
Quarter: 2011Q2

REPORT INFORMATION
  Report Type: 
  Country: None (occurrence: None)
  Receive Date: 20110509
  Receipt Date: 20110503
  Transmission Date: 20111010
  Serious: Yes (Other)
  Sender: FDA-Public Use
  Company Number: GB-MERCK-1105GBR00008

PATIENT
  Age: 23 Year
  Sex: Female

DRUGS (4)
  1. INSULIN [Suspect]
     Route: 065
  2. HORMONAL CONTRACEPTIVES (UNSPECIFIED) [Suspect]
     Route: 065
  3. METFORMIN HCL [Suspect]
     Route: 065
  4. ZOCOR [Suspect]
     Route: 048

REACTIONS (2)
  - BLINDNESS [None]
  - DIABETIC KETOACIDOSIS [None]
